FAERS Safety Report 23207268 (Version 1)
Quarter: 2023Q4

REPORT INFORMATION
  Report Type: Spontaneous
  Country: US (occurrence: US)
  Receive Date: 20231120
  Receipt Date: 20231120
  Transmission Date: 20240109
  Serious: No
  Sender: FDA-Public Use
  Company Number: US-BRACCO-2023US04248

PATIENT
  Age: 73 Year
  Sex: Female

DRUGS (5)
  1. LUMASON [Suspect]
     Active Substance: SULFUR HEXAFLUORIDE
     Indication: Stress echocardiogram
     Dosage: 2 ML, SINGLE
     Route: 042
     Dates: start: 20230822, end: 20230822
  2. LUMASON [Suspect]
     Active Substance: SULFUR HEXAFLUORIDE
     Indication: Stress echocardiogram
     Dosage: 2 ML, SINGLE
     Route: 042
     Dates: start: 20230822, end: 20230822
  3. LUMASON [Suspect]
     Active Substance: SULFUR HEXAFLUORIDE
     Indication: Stress echocardiogram
     Dosage: 2 ML, SINGLE
     Route: 042
     Dates: start: 20230822, end: 20230822
  4. PANTOPRAZOLE [Concomitant]
     Active Substance: PANTOPRAZOLE
  5. ONDANSETRON [Concomitant]
     Active Substance: ONDANSETRON

REACTIONS (6)
  - Cold sweat [Recovered/Resolved]
  - Heart rate increased [Recovered/Resolved]
  - Feeling abnormal [Recovered/Resolved]
  - Pain [Recovered/Resolved]
  - Nausea [Recovered/Resolved]
  - Swollen tongue [Recovered/Resolved]

NARRATIVE: CASE EVENT DATE: 20230822
